FAERS Safety Report 8113000-5 (Version None)
Quarter: 2012Q1

REPORT INFORMATION
  Report Type: 
  Country: None (occurrence: None)
  Receive Date: 20120203
  Receipt Date: 20120123
  Transmission Date: 20120608
  Serious: Yes (Hospitalization)
  Sender: FDA-Public Use
  Company Number: US-ELI_LILLY_AND_COMPANY-US201107006588

PATIENT
  Sex: Female

DRUGS (17)
  1. FORTEO [Suspect]
     Indication: OSTEOPOROSIS
     Dosage: 20 UG, QD
     Route: 065
     Dates: start: 20110708
  2. OMEPRAZOLE [Concomitant]
  3. VERAPAMIL [Concomitant]
  4. FORTEO [Suspect]
     Dosage: 20 UG, QD
     Route: 065
  5. ADVAIR DISKUS 100/50 [Concomitant]
  6. PERCOCET [Concomitant]
  7. SPIRIVA [Concomitant]
  8. METFORMIN HCL [Concomitant]
  9. FOLIC ACID [Concomitant]
  10. PREDNISONE TAB [Concomitant]
  11. LEVOSALBUTAMOL [Concomitant]
  12. BACID [Concomitant]
  13. COLACE [Concomitant]
  14. CYMBALTA [Concomitant]
  15. XANAX [Concomitant]
  16. DOXYCYCLINE [Concomitant]
  17. TIZANIDINE HCL [Concomitant]

REACTIONS (6)
  - MOVEMENT DISORDER [None]
  - DYSPNOEA [None]
  - EMPHYSEMA [None]
  - BRONCHOPULMONARY ASPERGILLOSIS [None]
  - PAIN IN EXTREMITY [None]
  - PARAESTHESIA [None]
